FAERS Safety Report 8780036 (Version 1)
Quarter: 2012Q4

REPORT INFORMATION
  Report Type: Spontaneous
  Country: US (occurrence: None)
  Receive Date: 20120831
  Receipt Date: 20120831
  Transmission Date: 20130627
  Serious: Yes (Hospitalization)
  Sender: FDA-Public Use
  Company Number: None

PATIENT
  Age: 74 Year
  Sex: Female
  Weight: 71.5 kg

DRUGS (1)
  1. REVLIMID [Suspect]
     Dosage: 20mg once QD for 21 days
     Dates: start: 20120404, end: 20120605

REACTIONS (1)
  - Deep vein thrombosis [None]
